FAERS Safety Report 5743664-2 (Version None)
Quarter: 2008Q2

REPORT INFORMATION
  Report Type: 
  Country: None (occurrence: None)
  Receive Date: 20080516
  Receipt Date: 20080507
  Transmission Date: 20081010
  Serious: Yes (Hospitalization)
  Sender: FDA-Public Use
  Company Number: 2008SP008682

PATIENT
  Sex: Male

DRUGS (1)
  1. CONSTIPAL (DEXBROMPHENIRAMINE MALEATE/PSEUDOEPHEDRINE SULFATE) (DEXBRO [Suspect]
     Indication: DRUG USE FOR UNKNOWN INDICATION
     Dosage: PO
     Route: 048
     Dates: start: 20080209, end: 20080210

REACTIONS (2)
  - EPISTAXIS [None]
  - HYPERTENSION [None]
